FAERS Safety Report 8235278-X (Version None)
Quarter: 2012Q1

REPORT INFORMATION
  Report Type: 
  Country: None (occurrence: None)
  Receive Date: 20120326
  Receipt Date: 20120319
  Transmission Date: 20120608
  Serious: Yes (Hospitalization)
  Sender: FDA-Public Use
  Company Number: US-ABBOTT-12P-163-0894377-00

PATIENT
  Sex: Female
  Weight: 65.83 kg

DRUGS (14)
  1. CIPROFLOXACIN HCL [Suspect]
     Indication: URINARY TRACT INFECTION
  2. DIOVAN [Concomitant]
     Indication: HYPERTENSION
  3. SINEMET [Concomitant]
     Indication: PARKINSON'S DISEASE
  4. LUTIEN [Concomitant]
     Indication: FAMILIAL RISK FACTOR
  5. APRISO [Concomitant]
     Indication: COLITIS ULCERATIVE
  6. SINEMET XR [Concomitant]
     Indication: PARKINSON'S DISEASE
  7. HUMIRA [Suspect]
     Indication: COLITIS ULCERATIVE
     Dates: start: 20110401
  8. HUMIRA [Suspect]
     Indication: CROHN'S DISEASE
  9. ROPINIROLE [Concomitant]
     Indication: PARKINSON'S DISEASE
  10. MULTI-VITAMIN [Concomitant]
     Indication: VITAMIN SUPPLEMENTATION
  11. AMBIEN [Concomitant]
     Indication: SLEEP DISORDER THERAPY
  12. METFORMIN HCL [Concomitant]
     Indication: DIABETES MELLITUS
  13. CALCIUM 600 + D [Concomitant]
     Indication: MINERAL SUPPLEMENTATION
  14. GLIPIZIDE [Concomitant]
     Indication: DIABETES MELLITUS

REACTIONS (10)
  - URINARY TRACT OBSTRUCTION [None]
  - OFF LABEL USE [None]
  - ABDOMINAL PAIN [None]
  - VOMITING [None]
  - NAUSEA [None]
  - INJECTION SITE ERYTHEMA [None]
  - NEPHROLITHIASIS [None]
  - INJECTION SITE PRURITUS [None]
  - URINARY TRACT INFECTION [None]
  - LIP SWELLING [None]
